FAERS Safety Report 8155896-7 (Version None)
Quarter: 2012Q1

REPORT INFORMATION
  Report Type: 
  Country: None (occurrence: None)
  Receive Date: 20120216
  Receipt Date: 20120203
  Transmission Date: 20120608
  Serious: Yes (Hospitalization)
  Sender: FDA-Public Use
  Company Number: 1000028301

PATIENT
  Age: 50 Year
  Sex: Female

DRUGS (5)
  1. PRAZEPAM [Concomitant]
  2. MAGNESIUM (MAGNESIUM) (MAGNESIUM) [Concomitant]
  3. ESCITALOPRAM OXALATE [Suspect]
     Dosage: 10 MG (10 MG, 1 IN 1 D) 20 MG (20 MG, 1 IN 1 D) 5 MG (10 MG, 1 IN 2 D)
     Dates: start: 20080101
  4. ESCITALOPRAM OXALATE [Suspect]
     Dosage: 10 MG (10 MG, 1 IN 1 D) 20 MG (20 MG, 1 IN 1 D) 5 MG (10 MG, 1 IN 2 D)
     Dates: start: 20090101
  5. LEXOMIL (BROMAZEPAM) (BROMAZEPAM) [Concomitant]

REACTIONS (6)
  - HAEMORRHOIDS [None]
  - PROCEDURAL COMPLICATION [None]
  - ORTHOSTATIC HYPOTENSION [None]
  - CARDIAC ARREST [None]
  - MALAISE [None]
  - PARAESTHESIA [None]
